FAERS Safety Report 19544873 (Version 1)
Quarter: 2021Q3

REPORT INFORMATION
  Report Type: Spontaneous
  Country: FR (occurrence: FR)
  Receive Date: 20210713
  Receipt Date: 20210713
  Transmission Date: 20211014
  Serious: Yes (Other)
  Sender: FDA-Public Use
  Company Number: FR-SAMSUNG BIOEPIS-SB-2021-16632

PATIENT
  Age: 46 Year
  Sex: Female
  Weight: 60 kg

DRUGS (1)
  1. IMRALDI [Suspect]
     Active Substance: ADALIMUMAB
     Indication: AXIAL SPONDYLOARTHRITIS
     Route: 059
     Dates: start: 201910

REACTIONS (2)
  - Angioedema [Not Recovered/Not Resolved]
  - Incorrect route of product administration [Unknown]

NARRATIVE: CASE EVENT DATE: 202011
